FAERS Safety Report 18732613 (Version 2)
Quarter: 2021Q1

REPORT INFORMATION
  Report Type: Spontaneous
  Country: US (occurrence: US)
  Receive Date: 20210112
  Receipt Date: 20210112
  Transmission Date: 20210419
  Serious: No
  Sender: FDA-Public Use
  Company Number: US-GALDERMA-US2020051121

PATIENT
  Age: 24 Year
  Sex: Female

DRUGS (3)
  1. AKLIEF [Suspect]
     Active Substance: TRIFAROTENE
     Indication: ACNE
     Dosage: 0.005%
     Route: 061
     Dates: start: 202011, end: 20201203
  2. AKLIEF [Suspect]
     Active Substance: TRIFAROTENE
     Indication: SKIN HYPERPIGMENTATION
  3. CLINDAMYCIN. [Concomitant]
     Active Substance: CLINDAMYCIN
     Indication: PRODUCT USED FOR UNKNOWN INDICATION
     Route: 065

REACTIONS (5)
  - Rash [Unknown]
  - Skin burning sensation [Unknown]
  - Scar [Not Recovered/Not Resolved]
  - Intentional product use issue [Recovered/Resolved]
  - Skin exfoliation [Unknown]

NARRATIVE: CASE EVENT DATE: 2020
